FAERS Safety Report 20437901 (Version 1)
Quarter: 2022Q1

REPORT INFORMATION
  Report Type: Report from Study
  Country: IT (occurrence: IT)
  Receive Date: 20220207
  Receipt Date: 20220207
  Transmission Date: 20220424
  Serious: Yes (Other)
  Sender: FDA-Public Use
  Company Number: IT-NOVARTISPH-NVSC2020IT084880

PATIENT
  Sex: Female

DRUGS (2)
  1. COSENTYX [Suspect]
     Active Substance: SECUKINUMAB
     Indication: Product used for unknown indication
     Dosage: 300 MG, EVERY 28 DAYS
     Route: 065
     Dates: start: 20200121
  2. COSENTYX [Suspect]
     Active Substance: SECUKINUMAB
     Dosage: 300 MG, EVERY 28 DAYS
     Route: 065
     Dates: start: 20200221

REACTIONS (11)
  - Psoriatic arthropathy [Unknown]
  - Bone pain [Unknown]
  - Menstrual disorder [Unknown]
  - Hot flush [Unknown]
  - Psoriasis [Unknown]
  - Pain in extremity [Unknown]
  - Back pain [Unknown]
  - Pain [Unknown]
  - Arthralgia [Unknown]
  - Nervousness [Unknown]
  - Drug ineffective [Unknown]
